FAERS Safety Report 18845426 (Version 1)
Quarter: 2021Q1

REPORT INFORMATION
  Report Type: Report from Study
  Country: US (occurrence: US)
  Receive Date: 20210203
  Receipt Date: 20210203
  Transmission Date: 20210419
  Serious: No
  Sender: FDA-Public Use
  Company Number: US-EXELIXIS-CABO-20029559

PATIENT
  Age: 72 Year
  Sex: Female

DRUGS (1)
  1. CABOMETYX [Suspect]
     Active Substance: CABOZANTINIB S-MALATE
     Indication: NEOPLASM MALIGNANT
     Dosage: 60 MG(21 DAYS W/7 DAY BREAK )
     Dates: start: 20200427

REACTIONS (5)
  - Off label use [Unknown]
  - Dyspepsia [Unknown]
  - Abdominal pain [Unknown]
  - Flatulence [Unknown]
  - Inappropriate schedule of product administration [Unknown]

NARRATIVE: CASE EVENT DATE: 20200427
